FAERS Safety Report 6821721-7 (Version None)
Quarter: 2010Q3

REPORT INFORMATION
  Report Type: 
  Country: None (occurrence: None)
  Receive Date: 20100702
  Receipt Date: 20100616
  Transmission Date: 20110219
  Serious: Yes (Other)
  Sender: FDA-Public Use
  Company Number: 1-23053825

PATIENT
  Age: 26 Year
  Sex: Female

DRUGS (1)
  1. ONDANSETRON INJECTION USP 2MG/ML [Suspect]
     Indication: PROPHYLAXIS OF NAUSEA AND VOMITING
     Dosage: 6 MG EVERY 12 HOURS; INTRAVENOUS
     Route: 042

REACTIONS (2)
  - DRUG INEFFECTIVE [None]
  - HEADACHE [None]
